FAERS Safety Report 8924715 (Version 2)
Quarter: 2012Q4

REPORT INFORMATION
  Report Type: 
  Country: US (occurrence: US)
  Receive Date: 20121126
  Receipt Date: 20121130
  Transmission Date: 20130627
  Serious: No
  Sender: FDA-Public Use
  Company Number: US-009507513-1211USA008480

PATIENT
  Age: 58 Year
  Sex: Female
  Weight: 72.56 kg

DRUGS (4)
  1. CLARITIN-D 12 HOUR [Suspect]
     Indication: RESPIRATORY TRACT CONGESTION
     Dosage: 5 mg, q12h
     Route: 048
     Dates: start: 20120923, end: 20120926
  2. CLARITIN-D 12 HOUR [Suspect]
     Indication: INFLAMMATION
  3. CLARITIN-D 12 HOUR [Suspect]
     Indication: MEDICAL OBSERVATION
  4. AZITHROMYCIN [Concomitant]
     Indication: RESPIRATORY TRACT INFECTION
     Dosage: 250 mg, Unknown
     Dates: start: 20120923

REACTIONS (3)
  - Heart rate increased [Not Recovered/Not Resolved]
  - Blood pressure increased [Recovered/Resolved]
  - Expired drug administered [Recovered/Resolved]
